FAERS Safety Report 6052991-3 (Version None)
Quarter: 2009Q1

REPORT INFORMATION
  Report Type: 
  Country: None (occurrence: None)
  Receive Date: 20090127
  Receipt Date: 20081210
  Transmission Date: 20090719
  Serious: No
  Sender: FDA-Public Use
  Company Number: US-ABBOTT-08P-163-0492298-00

PATIENT
  Sex: Male
  Weight: 95.34 kg

DRUGS (7)
  1. LUPRON DEPOT [Suspect]
     Indication: PROSTATE CANCER
     Dates: start: 20080701
  2. AMLODIPINE [Concomitant]
     Indication: HYPERTENSION
     Dosage: UNKNOWN
  3. MORNIFLUMATE [Concomitant]
     Indication: PROSTATE CANCER
     Dosage: UNKNOWN
  4. IRBESARTAN [Concomitant]
     Indication: HYPERTENSION
     Dosage: UNKNOWN
  5. ALPRAZOLAM [Concomitant]
     Indication: INSOMNIA
     Dosage: UNKNOWN
  6. UNKNOWN BLOOD PRESSURE MEDICATION [Concomitant]
     Indication: BLOOD PRESSURE
     Dosage: UNKNOWN
  7. UNKNOWN MEDICATION FOR UROLOGIC PROBLEMS [Concomitant]
     Indication: DRUG USE FOR UNKNOWN INDICATION
     Dosage: UNKNOWN

REACTIONS (2)
  - FEELING COLD [None]
  - OEDEMA PERIPHERAL [None]
